FAERS Safety Report 4737122-1 (Version None)
Quarter: 2005Q3

REPORT INFORMATION
  Report Type: 
  Country: None (occurrence: None)
  Receive Date: 20050728
  Receipt Date: 20050607
  Transmission Date: 20060218
  Serious: Yes (Other)
  Sender: FDA-Public Use
  Company Number: 200514799US

PATIENT
  Sex: Female

DRUGS (2)
  1. KETEK [Suspect]
  2. ZITHROMAX [Concomitant]

REACTIONS (2)
  - ANAPHYLACTIC REACTION [None]
  - PHARYNGEAL OEDEMA [None]
